FAERS Safety Report 4314755-8 (Version None)
Quarter: 2004Q1

REPORT INFORMATION
  Report Type: 
  Country: None (occurrence: None)
  Receive Date: 20040308
  Receipt Date: 20040226
  Transmission Date: 20041129
  Serious: Yes (Death)
  Sender: FDA-Public Use
  Company Number: 2004EU000427

PATIENT
  Age: 55 Year
  Sex: Male

DRUGS (2)
  1. PROGRAF [Suspect]
     Indication: HEART TRANSPLANT
     Dates: start: 19960101, end: 19981201
  2. PREDNISONE [Concomitant]

REACTIONS (11)
  - ABDOMINAL PAIN [None]
  - CIRCULATORY COLLAPSE [None]
  - DERMATITIS EXFOLIATIVE [None]
  - GENERAL PHYSICAL HEALTH DETERIORATION [None]
  - HAEMODIALYSIS [None]
  - HAEMOGLOBIN DECREASED [None]
  - PANCREATITIS NECROTISING [None]
  - PLATELET COUNT DECREASED [None]
  - RENAL FAILURE ACUTE [None]
  - VISCERAL LEISHMANIASIS [None]
  - WHITE BLOOD CELL COUNT DECREASED [None]
